FAERS Safety Report 9656825 (Version 2)
Quarter: 2013Q4

REPORT INFORMATION
  Report Type: Spontaneous
  Country: BR (occurrence: BR)
  Receive Date: 20131030
  Receipt Date: 20131030
  Transmission Date: 20140711
  Serious: Yes (Other)
  Sender: FDA-Public Use
  Company Number: BR-ROCHE-1289484

PATIENT
  Age: 39 Year
  Sex: Female
  Weight: 58.7 kg

DRUGS (7)
  1. AVASTIN [Suspect]
     Indication: BREAST NEOPLASM
     Dosage: LATEST CYCLE OF ON 11/SEP/2013.
     Route: 065
  2. AVASTIN [Suspect]
     Route: 042
     Dates: start: 20131009
  3. TAXOL [Concomitant]
     Indication: BREAST NEOPLASM
     Dosage: LATEST CYCLE OF ON 11/SEP/2013.
     Route: 065
  4. DEXAMETHASONE [Concomitant]
     Route: 042
     Dates: start: 20131009
  5. NAUSEDRON [Concomitant]
     Route: 042
     Dates: start: 20131009
  6. DIFENIDRIN [Concomitant]
     Route: 042
     Dates: start: 20131009
  7. LEXOTAN [Concomitant]
     Route: 048

REACTIONS (8)
  - Blepharal pigmentation [Recovered/Resolved]
  - Eye swelling [Unknown]
  - Dark circles under eyes [Unknown]
  - Skin hyperpigmentation [Unknown]
  - Paraesthesia [Unknown]
  - Hypertension [Recovered/Resolved]
  - Neck pain [Recovered/Resolved]
  - Neck pain [Unknown]
